FAERS Safety Report 5520415-8 (Version None)
Quarter: 2007Q4

REPORT INFORMATION
  Report Type: 
  Country: None (occurrence: None)
  Receive Date: 20071119
  Receipt Date: 20071108
  Transmission Date: 20080405
  Serious: Yes (Congenital Anomaly, Other)
  Sender: FDA-Public Use
  Company Number: US-PFIZER INC-2004097801

PATIENT
  Sex: Male
  Weight: 3.37 kg

DRUGS (8)
  1. VIRACEPT [Suspect]
     Indication: HIV TEST POSITIVE
     Dosage: DAILY DOSE:2500MG
     Route: 064
     Dates: start: 20040130, end: 20040601
  2. COMBIVIR [Suspect]
     Indication: HIV TEST POSITIVE
     Dosage: DAILY DOSE:500MG
     Route: 064
     Dates: start: 20040130, end: 20040601
  3. KALETRA [Suspect]
     Indication: HIV TEST POSITIVE
     Dosage: DAILY DOSE:600MG
     Route: 064
     Dates: start: 20040601, end: 20070620
  4. RETROVIR [Suspect]
     Indication: HIV TEST POSITIVE
     Dosage: DAILY DOSE:600MG
     Route: 064
     Dates: start: 20040601, end: 20040720
  5. VIREAD [Suspect]
     Indication: HIV TEST POSITIVE
     Dosage: DAILY DOSE:300MG
     Route: 064
     Dates: start: 20040601, end: 20040620
  6. CRIXIVAN [Suspect]
     Dosage: DAILY DOSE:600MG
     Route: 064
     Dates: start: 20040601, end: 20040720
  7. TRUVADA [Suspect]
     Dosage: DAILY DOSE:300MG
     Route: 064
     Dates: start: 20040601, end: 20070401
  8. FOLIC ACID [Concomitant]
     Route: 064

REACTIONS (6)
  - ABDOMINAL DISTENSION [None]
  - CARDIAC MURMUR [None]
  - CONGENITAL ABDOMINAL HERNIA [None]
  - CONGENITAL ANOMALY [None]
  - CRYPTORCHISM [None]
  - DRUG EXPOSURE DURING PREGNANCY [None]
